FAERS Safety Report 5099931-1 (Version None)
Quarter: 2006Q3

REPORT INFORMATION
  Report Type: 
  Country: None (occurrence: None)
  Receive Date: 20060906
  Receipt Date: 20060906
  Transmission Date: 20061208
  Serious: Yes (Death)
  Sender: FDA-Public Use
  Company Number: None

PATIENT
  Age: 46 Year
  Sex: Male
  Weight: 107.9561 kg

DRUGS (14)
  1. FENTANYL [Suspect]
     Indication: PAIN IN EXTREMITY
     Dosage: 1 DISC EVERY 3 DAYS
     Dates: start: 20060212, end: 20060212
  2. LIPITOR [Concomitant]
  3. ZOLOFT [Concomitant]
  4. ALLOPURINOL [Concomitant]
  5. LASIX [Concomitant]
  6. FUROSEMIDE [Concomitant]
  7. ATENOLOL [Concomitant]
  8. ASPIRIN [Concomitant]
  9. PLAVIX [Concomitant]
  10. AVAPRO [Concomitant]
  11. CARDIZEM CD [Concomitant]
  12. DILTIAZUM [Concomitant]
  13. ZESTRIL [Concomitant]
  14. LISINOPRIL [Concomitant]

REACTIONS (1)
  - DEATH [None]
